FAERS Safety Report 10474772 (Version 3)
Quarter: 2015Q1

REPORT INFORMATION
  Report Type: Report from Study
  Country: US (occurrence: US)
  Receive Date: 20140925
  Receipt Date: 20150317
  Transmission Date: 20150720
  Serious: Yes (Other)
  Sender: FDA-Public Use
  Company Number: US-AMGEN INC.-USASP2014072902

PATIENT
  Age: 70 Year
  Sex: Female

DRUGS (2)
  1. ENBREL [Suspect]
     Active Substance: ETANERCEPT
     Indication: RHEUMATOID ARTHRITIS
     Dosage: 50 MG, QWK
     Route: 058
     Dates: end: 2013
  2. ENBREL [Suspect]
     Active Substance: ETANERCEPT
     Indication: PSORIASIS

REACTIONS (7)
  - Skin irritation [Unknown]
  - Skin haemorrhage [Unknown]
  - Psoriasis [Not Recovered/Not Resolved]
  - Skin atrophy [Unknown]
  - Cystitis [Unknown]
  - Clostridium difficile infection [Unknown]
  - Pruritus [Unknown]

NARRATIVE: CASE EVENT DATE: 20131003
